FAERS Safety Report 10147359 (Version 1)
Quarter: 2014Q2

REPORT INFORMATION
  Report Type: Spontaneous
  Country: US (occurrence: US)
  Receive Date: 20140501
  Receipt Date: 20140501
  Transmission Date: 20141212
  Serious: No
  Sender: FDA-Public Use
  Company Number: US-SA-2014SA022435

PATIENT
  Age: 60 Year
  Sex: Male
  Weight: 63.8 kg

DRUGS (6)
  1. HECTOROL [Suspect]
     Indication: HYPOPARATHYROIDISM
     Route: 042
     Dates: start: 20131219, end: 20140123
  2. AMLODIPINE [Concomitant]
     Indication: HYPERTENSION
     Dates: start: 20130406
  3. CLONIDINE [Concomitant]
     Indication: HYPERTENSION
     Dates: start: 20130829
  4. COMBIVENT [Concomitant]
     Indication: CHRONIC OBSTRUCTIVE PULMONARY DISEASE
     Dosage: 18/103 MCG/ACTUATION
     Dates: start: 20130406
  5. FOSINOPRIL [Concomitant]
     Indication: HYPERTENSION
     Dates: start: 20130406
  6. PRAVACHOL [Concomitant]
     Indication: HYPERLIPIDAEMIA

REACTIONS (1)
  - Pruritus [Recovered/Resolved]
